FAERS Safety Report 4973500-3 (Version None)
Quarter: 2006Q2

REPORT INFORMATION
  Report Type: 
  Country: None (occurrence: None)
  Receive Date: 20060413
  Receipt Date: 20060413
  Transmission Date: 20061013
  Serious: Yes (Other)
  Sender: FDA-Public Use
  Company Number: None

PATIENT
  Age: 73 Year
  Sex: Male
  Weight: 94.8 kg

DRUGS (9)
  1. ZOCOR [Suspect]
  2. METOPROLOL TARTRATE [Concomitant]
  3. OMEPRAZOLE [Concomitant]
  4. DILTIAZEM (INWOOD/TIAZAC) [Concomitant]
  5. SIMVASTATIN [Concomitant]
  6. IRBESARTAN [Concomitant]
  7. COUMADIN [Concomitant]
  8. CAPSAICIN [Concomitant]
  9. INSULIN, GLARGINE, HUMAN [Concomitant]

REACTIONS (1)
  - MYALGIA [None]
